FAERS Safety Report 9050605 (Version 2)
Quarter: 2013Q2

REPORT INFORMATION
  Report Type: Spontaneous
  Country: US (occurrence: US)
  Receive Date: 20130205
  Receipt Date: 20130425
  Transmission Date: 20140414
  Serious: Yes (Other)
  Sender: FDA-Public Use
  Company Number: US-009507513-1302USA001037

PATIENT
  Sex: Male

DRUGS (3)
  1. SYLATRON [Suspect]
     Indication: MALIGNANT MELANOMA
     Dosage: UNK
     Route: 065
     Dates: start: 201209
  2. BENADRYL [Concomitant]
  3. CELEXA [Concomitant]

REACTIONS (2)
  - Loss of consciousness [Unknown]
  - Convulsion [Unknown]
